FAERS Safety Report 6068660-X (Version None)
Quarter: 2009Q1

REPORT INFORMATION
  Report Type: 
  Country: None (occurrence: None)
  Receive Date: 20090206
  Receipt Date: 20090203
  Transmission Date: 20090719
  Serious: Yes (Hospitalization)
  Sender: FDA-Public Use
  Company Number: A0765707A

PATIENT
  Age: 56 Year
  Sex: Male
  Weight: 58 kg

DRUGS (3)
  1. LAPATINIB [Suspect]
     Dosage: 1500MG PER DAY
     Route: 048
     Dates: start: 20081224
  2. CISPLATIN [Suspect]
     Dosage: 100MGM2 CYCLIC
     Route: 042
     Dates: start: 20081231
  3. RADIATION [Suspect]
     Dosage: 10GY PER DAY
     Route: 061
     Dates: start: 20081231

REACTIONS (3)
  - EPISTAXIS [None]
  - MOUTH HAEMORRHAGE [None]
  - STOMATITIS [None]
